FAERS Safety Report 8187568-7 (Version None)
Quarter: 2012Q1

REPORT INFORMATION
  Report Type: 
  Country: None (occurrence: None)
  Receive Date: 20120302
  Receipt Date: 20120221
  Transmission Date: 20120608
  Serious: Yes (Hospitalization)
  Sender: FDA-Public Use
  Company Number: 2012HGS-003305

PATIENT
  Sex: Female

DRUGS (4)
  1. SEPTRA DS (BACTRIM)(SULFAMETHOXAZOLE, TRIMETHOPRIM) [Concomitant]
  2. BENLYSTA [Suspect]
     Indication: SYSTEMIC LUPUS ERYTHEMATOSUS
     Dosage: 10 MG/KG, INTRAVENOUS DRIP
     Route: 042
  3. CORTICOSTEROIDS (CORTICOSTEROIDS)(CORTICOSTEROIDS) [Concomitant]
  4. CHLOROQUIN (CHLOROQUINE PHOSPHATE)(CHLOROQUINE PHOSPHATE) [Concomitant]

REACTIONS (7)
  - ABDOMINAL PAIN [None]
  - SYSTEMIC LUPUS ERYTHEMATOSUS [None]
  - VOMITING [None]
  - PYREXIA [None]
  - GASTROINTESTINAL OEDEMA [None]
  - CONDITION AGGRAVATED [None]
  - NAUSEA [None]
